FAERS Safety Report 4317254-2 (Version None)
Quarter: 2004Q1

REPORT INFORMATION
  Report Type: 
  Country: None (occurrence: None)
  Receive Date: 20040312
  Receipt Date: 20040225
  Transmission Date: 20041129
  Serious: Yes (Other)
  Sender: FDA-Public Use
  Company Number: 2001-BP-00749 (1)

PATIENT
  Age: 28 Year
  Sex: Female

DRUGS (1)
  1. NEVIRAPINE (TA) [Suspect]
     Indication: PROPHYLAXIS AGAINST HIV INFECTION
     Dosage: 200 MG (200 MG, SINGLE DOSE)
     Route: 048
     Dates: start: 20001215, end: 20001215

REACTIONS (8)
  - ANAEMIA [None]
  - CAESAREAN SECTION [None]
  - CEPHALO-PELVIC DISPROPORTION [None]
  - COMPLICATIONS OF MATERNAL EXPOSURE TO THERAPEUTIC DRUGS [None]
  - INCISION SITE COMPLICATION [None]
  - POSTPARTUM HAEMORRHAGE [None]
  - SUTURE RELATED COMPLICATION [None]
  - WOUND DEHISCENCE [None]
